FAERS Safety Report 9024597 (Version 1)
Quarter: 2013Q1

REPORT INFORMATION
  Report Type: Spontaneous
  Country: US (occurrence: US)
  Receive Date: 20130121
  Receipt Date: 20130121
  Transmission Date: 20140127
  Serious: Yes (Other)
  Sender: FDA-Public Use
  Company Number: US-AMGEN-USASP2013002325

PATIENT
  Age: 45 Year
  Sex: Female

DRUGS (1)
  1. ENBREL [Suspect]
     Indication: ANKYLOSING SPONDYLITIS
     Dosage: 50 MG, QWK
     Dates: start: 20121005, end: 20121012

REACTIONS (5)
  - Dyspnoea [Recovered/Resolved]
  - Pain [Recovered/Resolved]
  - Pain of skin [Recovered/Resolved]
  - Fatigue [Recovered/Resolved]
  - Condition aggravated [Not Recovered/Not Resolved]
